FAERS Safety Report 4704571-7 (Version None)
Quarter: 2005Q2

REPORT INFORMATION
  Report Type: 
  Country: None (occurrence: None)
  Receive Date: 20050629
  Receipt Date: 20050613
  Transmission Date: 20051028
  Serious: Yes (Hospitalization)
  Sender: FDA-Public Use
  Company Number: 2005EU001272

PATIENT
  Age: 29 Year
  Sex: Female

DRUGS (7)
  1. FK506                (TACROLIMUS ) [Suspect]
     Indication: LIVER TRANSPLANT
     Dosage: 2.00 MG UID/QD ORAL
     Route: 048
     Dates: start: 20040818
  2. MYCOPHENOLATE MOFETIL              (MYCOPHENOLATE MOFETIL) [Suspect]
     Indication: LIVER TRANSPLANT
     Dosage: 500 MG UID/QD IV
     Route: 042
     Dates: start: 20040818, end: 20040823
  3. METHYLPREDNISOLONE [Suspect]
     Indication: LIVER TRANSPLANT
     Dosage: 500.00 MG UID/QD
     Dates: start: 20040818
  4. PERDNISONE   (PREDNISONE) [Suspect]
     Indication: LIVER TRANSPLANT
     Dosage: 20.00 MG UID/QD
     Dates: start: 20040823
  5. FENTANYL [Concomitant]
  6. ATRACURIUM BESYLATE [Concomitant]
  7. THIOPENTON-NATRIUM                  (THIOPENTAL SODIUM) [Concomitant]

REACTIONS (1)
  - HEPATIC FAILURE [None]
